FAERS Safety Report 16218708 (Version 1)
Quarter: 2019Q2

REPORT INFORMATION
  Report Type: Spontaneous
  Country: US (occurrence: US)
  Receive Date: 20190419
  Receipt Date: 20190419
  Transmission Date: 20190711
  Serious: Yes (Other)
  Sender: FDA-Public Use
  Company Number: US-PERRIGO-19US004695

PATIENT
  Sex: Male
  Weight: 82.09 kg

DRUGS (3)
  1. ANTIHYPERTENSIVES [Concomitant]
     Active Substance: UNSPECIFIED INGREDIENT
     Indication: HYPERTENSION
     Dosage: UNK
     Route: 065
  2. LOPERAMIDE HYDROCHLORIDE. [Suspect]
     Active Substance: LOPERAMIDE HYDROCHLORIDE
     Indication: DIARRHOEA
     Dosage: 6 TO 8 MG, QD PRN (2 TABLETS AFTER FIRST LOOSE STOOL, 1 TABLET AFTER EACH SUBSEQUENT LOOSE STOOL)
     Route: 048
     Dates: end: 20190409
  3. LIPID MODIFYING AGENTS [Concomitant]
     Active Substance: UNSPECIFIED INGREDIENT
     Indication: BLOOD CHOLESTEROL INCREASED
     Dosage: UNK
     Route: 065

REACTIONS (5)
  - Swelling face [Unknown]
  - Lip swelling [Unknown]
  - Incorrect product administration duration [Recovered/Resolved]
  - Urticaria [Unknown]
  - Allergic reaction to excipient [Unknown]
